FAERS Safety Report 22033985 (Version 1)
Quarter: 2023Q1

REPORT INFORMATION
  Report Type: Spontaneous
  Country: US (occurrence: US)
  Receive Date: 20230224
  Receipt Date: 20230224
  Transmission Date: 20230418
  Serious: Yes (Other)
  Sender: FDA-Public Use
  Company Number: US-MLMSERVICE-20221122-3928973-1

PATIENT

DRUGS (2)
  1. CLOBETASOL PROPIONATE [Suspect]
     Active Substance: CLOBETASOL PROPIONATE
     Indication: Alopecia areata
     Dosage: 1 DOSAGE FORM, IN THE MORNING
     Route: 061
  2. MINOXIDIL [Suspect]
     Active Substance: MINOXIDIL
     Indication: Alopecia areata
     Dosage: 1 DOSAGE FORM, QD, IN THE EVENING
     Route: 061

REACTIONS (5)
  - Atrial fibrillation [Recovered/Resolved]
  - Dermatitis [Recovered/Resolved]
  - Oedema peripheral [Recovered/Resolved]
  - Drug ineffective for unapproved indication [Recovered/Resolved]
  - Intentional product use issue [Recovered/Resolved]
